FAERS Safety Report 6341117-4 (Version None)
Quarter: 2009Q3

REPORT INFORMATION
  Report Type: 
  Country: None (occurrence: None)
  Receive Date: 20090904
  Receipt Date: 20090402
  Transmission Date: 20100115
  Serious: No
  Sender: FDA-Public Use
  Company Number: A0667876A

PATIENT
  Age: 88 Year
  Sex: Female

DRUGS (14)
  1. REQUIP [Suspect]
     Indication: RESTLESS LEGS SYNDROME
     Dosage: .5MG AT NIGHT
     Route: 048
  2. SINEMET [Concomitant]
  3. CELEBREX [Concomitant]
  4. LASIX [Concomitant]
  5. PLAVIX [Concomitant]
  6. PREVACID [Concomitant]
  7. SYNTHROID [Concomitant]
  8. FOSAMAX [Concomitant]
  9. PREMARIN [Concomitant]
  10. METOPROLOL [Concomitant]
  11. ATIVAN [Concomitant]
  12. CENTRUM SILVER [Concomitant]
  13. CALCIUM CITRATE [Concomitant]
  14. VITAMIN D [Concomitant]

REACTIONS (7)
  - DIZZINESS [None]
  - DRUG INEFFECTIVE [None]
  - FATIGUE [None]
  - GAIT DISTURBANCE [None]
  - HYPOTENSION [None]
  - RESTLESS LEGS SYNDROME [None]
  - TREMOR [None]
